FAERS Safety Report 6980487-0 (Version None)
Quarter: 2010Q3

REPORT INFORMATION
  Report Type: 
  Country: None (occurrence: None)
  Receive Date: 20100914
  Receipt Date: 20100901
  Transmission Date: 20110219
  Serious: Yes (Hospitalization, Other)
  Sender: FDA-Public Use
  Company Number: PHHY2010FR55249

PATIENT
  Age: 71 Year
  Sex: Female

DRUGS (2)
  1. TEGRETOL [Suspect]
     Dosage: UNK
     Route: 048
     Dates: start: 20100601, end: 20100715
  2. PAROXETINE HCL [Suspect]
     Dosage: UNK
     Route: 048
     Dates: start: 20100601, end: 20100717

REACTIONS (18)
  - ALANINE AMINOTRANSFERASE INCREASED [None]
  - ASPARTATE AMINOTRANSFERASE INCREASED [None]
  - C-REACTIVE PROTEIN INCREASED [None]
  - CATARACT CORTICAL [None]
  - DRUG RASH WITH EOSINOPHILIA AND SYSTEMIC SYMPTOMS [None]
  - DRY EYE [None]
  - DYSPHAGIA [None]
  - DYSPHONIA [None]
  - EOSINOPHIL COUNT INCREASED [None]
  - HERPES ZOSTER [None]
  - PURPURA [None]
  - RASH [None]
  - RASH MACULO-PAPULAR [None]
  - SWELLING FACE [None]
  - TOXIC SKIN ERUPTION [None]
  - TREMOR [None]
  - VISION BLURRED [None]
  - WHITE BLOOD CELL COUNT INCREASED [None]
